FAERS Safety Report 4929157-0 (Version None)
Quarter: 2006Q1

REPORT INFORMATION
  Report Type: 
  Country: None (occurrence: None)
  Receive Date: 20060301
  Receipt Date: 20050406
  Transmission Date: 20060701
  Serious: Yes (Hospitalization, Disabling)
  Sender: FDA-Public Use
  Company Number: US-ROCHE-401271

PATIENT
  Age: 29 Year
  Sex: Female
  Weight: 68 kg

DRUGS (5)
  1. ACCUTANE [Suspect]
     Route: 048
     Dates: start: 19961002, end: 19970601
  2. METRONIDAZOLE CREAM [Concomitant]
     Route: 061
     Dates: start: 19961213
  3. NOVACET LOTION [Concomitant]
     Dates: start: 19970215
  4. SUMYCIN [Concomitant]
     Dates: start: 19970227
  5. ORTHO TRI-CYCLEN [Concomitant]
     Dates: start: 19970328

REACTIONS (31)
  - ABDOMINAL PAIN [None]
  - ABDOMINAL PAIN UPPER [None]
  - ANAEMIA [None]
  - APHTHOUS STOMATITIS [None]
  - ARTHRITIS [None]
  - ARTHROPOD BITE [None]
  - BIOPSY ENDOMETRIUM ABNORMAL [None]
  - COLITIS [None]
  - COLITIS ULCERATIVE [None]
  - CROHN'S DISEASE [None]
  - DRUG EXPOSURE BEFORE PREGNANCY [None]
  - DRY EYE [None]
  - FATIGUE [None]
  - FLATULENCE [None]
  - FRACTURE [None]
  - GASTROINTESTINAL DISORDER [None]
  - GASTROOESOPHAGEAL REFLUX DISEASE [None]
  - HAEMATOCHEZIA [None]
  - HAEMORRHOIDS [None]
  - INFLAMMATORY BOWEL DISEASE [None]
  - INTERNAL INJURY [None]
  - INTESTINAL HAEMORRHAGE [None]
  - IRRITABLE BOWEL SYNDROME [None]
  - MELANOCYTIC NAEVUS [None]
  - NASAL DRYNESS [None]
  - NIGHT BLINDNESS [None]
  - OESOPHAGITIS [None]
  - OSTEOPENIA [None]
  - PROCTALGIA [None]
  - PULMONARY EMBOLISM [None]
  - RECTAL HAEMORRHAGE [None]
